FAERS Safety Report 7957398-7 (Version None)
Quarter: 2011Q4

REPORT INFORMATION
  Report Type: 
  Country: None (occurrence: None)
  Receive Date: 20111205
  Receipt Date: 20111123
  Transmission Date: 20120403
  Serious: Yes (Hospitalization, Other)
  Sender: FDA-Public Use
  Company Number: US-MERCK-1107USA01805

PATIENT
  Age: 60 Year
  Sex: Female
  Weight: 70 kg

DRUGS (6)
  1. ALENDRONATE SODIUM [Suspect]
     Indication: OSTEOPOROSIS
     Route: 048
     Dates: start: 20080101, end: 20090801
  2. PREMPRO [Concomitant]
     Indication: HORMONE THERAPY
     Route: 048
     Dates: start: 19960101, end: 20030519
  3. FOSAMAX [Suspect]
     Indication: OSTEOPOROSIS
     Route: 048
     Dates: start: 20000101, end: 20100101
  4. ACTONEL [Suspect]
     Route: 065
     Dates: start: 20090801, end: 20100701
  5. FOSAMAX [Suspect]
     Indication: OSTEOPENIA
     Route: 048
     Dates: start: 20000101, end: 20100101
  6. ALENDRONATE SODIUM [Suspect]
     Indication: OSTEOPENIA
     Route: 048
     Dates: start: 20080101, end: 20090801

REACTIONS (30)
  - MUSCLE INJURY [None]
  - BREAST CYST [None]
  - DEPRESSION [None]
  - HAEMORRHAGIC ANAEMIA [None]
  - FEMUR FRACTURE [None]
  - FALL [None]
  - OSTEOARTHRITIS [None]
  - LOW TURNOVER OSTEOPATHY [None]
  - TRIGGER FINGER [None]
  - TENOSYNOVITIS STENOSANS [None]
  - HYPERLIPIDAEMIA [None]
  - HOT FLUSH [None]
  - COLONIC POLYP [None]
  - BREAST DISORDER [None]
  - CONCUSSION [None]
  - ADVERSE DRUG REACTION [None]
  - BLOOD PRESSURE INCREASED [None]
  - POSTMENOPAUSAL HAEMORRHAGE [None]
  - ASTHENIA [None]
  - STRESS URINARY INCONTINENCE [None]
  - BONE DISORDER [None]
  - BREAST CANCER IN SITU [None]
  - FRACTURE NONUNION [None]
  - SNORING [None]
  - CONSTIPATION [None]
  - CARPAL TUNNEL SYNDROME [None]
  - FEELING JITTERY [None]
  - PAIN IN EXTREMITY [None]
  - HYPERTENSION [None]
  - SUBARACHNOID HAEMORRHAGE [None]
